FAERS Safety Report 8806096 (Version 1)
Quarter: 2012Q4

REPORT INFORMATION
  Report Type: 
  Country: US (occurrence: US)
  Receive Date: 20120925
  Receipt Date: 20120925
  Transmission Date: 20130627
  Serious: No
  Sender: FDA-Public Use
  Company Number: US-009507513-1209USA005276

PATIENT
  Age: 63 Year
  Sex: Female

DRUGS (2)
  1. PRINIVIL [Suspect]
  2. LOSARTAN POTASSIUM AND HYDROCHLOROTHIAZIDE [Suspect]

REACTIONS (1)
  - Cough [Unknown]
